FAERS Safety Report 4655916-8 (Version None)
Quarter: 2005Q2

REPORT INFORMATION
  Report Type: 
  Country: None (occurrence: None)
  Receive Date: 20050505
  Receipt Date: 20050420
  Transmission Date: 20051028
  Serious: Yes (Hospitalization)
  Sender: FDA-Public Use
  Company Number: DEU-2005-0001392

PATIENT
  Age: 51 Year
  Sex: Female

DRUGS (3)
  1. MORPHINE SULFATE INJ [Suspect]
     Indication: BUTTOCK PAIN
     Dosage: SEE IMAGE
     Route: 037
     Dates: start: 19950101, end: 20000601
  2. MORPHINE SULFATE INJ [Suspect]
     Indication: BUTTOCK PAIN
     Dosage: SEE IMAGE
     Route: 037
     Dates: start: 20000601
  3. CLONIDINE [Concomitant]

REACTIONS (6)
  - BODY TEMPERATURE INCREASED [None]
  - DEVICE MALFUNCTION [None]
  - HEADACHE [None]
  - MIGRATION OF IMPLANT [None]
  - PIRIFORMIS SYNDROME [None]
  - POST PROCEDURAL PAIN [None]
